FAERS Safety Report 4294435-8 (Version None)
Quarter: 2004Q1

REPORT INFORMATION
  Report Type: 
  Country: None (occurrence: None)
  Receive Date: 20040211
  Receipt Date: 20040202
  Transmission Date: 20041129
  Serious: Yes (Death)
  Sender: FDA-Public Use
  Company Number: 163-20785-04010142

PATIENT
  Age: 41 Year
  Sex: Female

DRUGS (1)
  1. THALOMID [Suspect]
     Indication: MYELOFIBROSIS
     Dosage: 300 MG, UNKNOWN, ORAL
     Route: 048
     Dates: start: 20000214, end: 20031223

REACTIONS (1)
  - PNEUMONIA [None]
